FAERS Safety Report 22324978 (Version 4)
Quarter: 2023Q4

REPORT INFORMATION
  Report Type: Spontaneous
  Country: GB (occurrence: GB)
  Receive Date: 20230516
  Receipt Date: 20231111
  Transmission Date: 20240110
  Serious: Yes (Other)
  Sender: FDA-Public Use
  Company Number: GB-PFIZER INC-PV202300078538

PATIENT
  Sex: Male

DRUGS (2)
  1. DOXYCYCLINE [Suspect]
     Active Substance: DOXYCYCLINE
     Indication: Product used for unknown indication
     Dosage: UNK
     Route: 065
     Dates: start: 2017
  2. DOXYCYCLINE [Suspect]
     Active Substance: DOXYCYCLINE
     Indication: Skin disorder

REACTIONS (6)
  - Anxiety [Recovering/Resolving]
  - Depression [Recovering/Resolving]
  - Panic attack [Recovering/Resolving]
  - Psychotic disorder [Recovering/Resolving]
  - Disturbance in attention [Recovering/Resolving]
  - Weight decreased [Recovering/Resolving]
